FAERS Safety Report 5025510-8 (Version None)
Quarter: 2006Q2

REPORT INFORMATION
  Report Type: 
  Country: None (occurrence: None)
  Receive Date: 20060607
  Receipt Date: 20060525
  Transmission Date: 20061013
  Serious: Yes (Hospitalization)
  Sender: FDA-Public Use
  Company Number: 2006060003

PATIENT
  Age: 53 Year
  Sex: Female

DRUGS (2)
  1. D-PENICILLAMINE               (PENICILLAMINE) [Suspect]
     Indication: RHEUMATOID ARTHRITIS
     Dosage: 150 MG/DAY
     Dates: start: 19970101, end: 20010301
  2. BENAZCLIN                  (CALCIUM/OLD CODE/) [Concomitant]

REACTIONS (9)
  - ANTI-PLATELET ANTIBODY [None]
  - GASTRIC VARICES [None]
  - HEPATIC CIRRHOSIS [None]
  - HEPATIC FUNCTION ABNORMAL [None]
  - HEPATITIS [None]
  - PERITONEAL HAEMORRHAGE [None]
  - PORTAL VEIN THROMBOSIS [None]
  - SPLENOMEGALY [None]
  - THROMBOCYTOPENIA [None]
